FAERS Safety Report 9054198 (Version 1)
Quarter: 2013Q1

REPORT INFORMATION
  Report Type: Spontaneous
  Country: BR (occurrence: BR)
  Receive Date: 20130208
  Receipt Date: 20130208
  Transmission Date: 20140127
  Serious: Yes (Other)
  Sender: FDA-Public Use
  Company Number: US-MEDICIS-2013P1001774

PATIENT
  Age: 28 Year
  Sex: Male

DRUGS (1)
  1. IMIQUIMOD [Suspect]
     Route: 061

REACTIONS (10)
  - Motor dysfunction [Recovered/Resolved]
  - Eye pain [Recovered/Resolved]
  - Influenza like illness [Recovered/Resolved]
  - Headache [Recovered/Resolved]
  - Nausea [Recovered/Resolved]
  - Pyrexia [Recovered/Resolved]
  - Fatigue [Recovered/Resolved]
  - Back pain [Recovered/Resolved]
  - Myalgia [Recovered/Resolved]
  - Skin exfoliation [Recovered/Resolved]
